FAERS Safety Report 6464942-8 (Version None)
Quarter: 2009Q4

REPORT INFORMATION
  Report Type: 
  Country: None (occurrence: None)
  Receive Date: 20091201
  Receipt Date: 20091125
  Transmission Date: 20100525
  Serious: Yes (Hospitalization, Other)
  Sender: FDA-Public Use
  Company Number: JP-BRISTOL-MYERS SQUIBB COMPANY-14838783

PATIENT
  Age: 61 Year
  Sex: Male

DRUGS (4)
  1. AVAPRO [Suspect]
     Indication: HYPERTENSION
     Route: 048
     Dates: start: 20091013, end: 20091026
  2. PARIET [Concomitant]
     Indication: DUODENAL ULCER
     Route: 048
     Dates: start: 20090920, end: 20091029
  3. MUCOSTA [Concomitant]
     Indication: GASTRITIS
     Route: 048
     Dates: start: 20090920, end: 20091026
  4. GANATON [Concomitant]
     Indication: GASTRITIS
     Route: 048
     Dates: start: 20090926, end: 20091013

REACTIONS (1)
  - HICCUPS [None]
